FAERS Safety Report 4525146-9 (Version None)
Quarter: 2004Q4

REPORT INFORMATION
  Report Type: 
  Country: None (occurrence: None)
  Receive Date: 20041210
  Receipt Date: 20041202
  Transmission Date: 20050328
  Serious: Yes (Death)
  Sender: FDA-Public Use
  Company Number: 200421116BWH

PATIENT

DRUGS (1)
  1. APROTININ [Suspect]
     Indication: HEART TRANSPLANT
     Dates: end: 20040101

REACTIONS (2)
  - POST PROCEDURAL COMPLICATION [None]
  - THROMBOSIS [None]
